FAERS Safety Report 6724696-4 (Version None)
Quarter: 2010Q2

REPORT INFORMATION
  Report Type: 
  Country: None (occurrence: None)
  Receive Date: 20100513
  Receipt Date: 20100504
  Transmission Date: 20101027
  Serious: Yes (Hospitalization)
  Sender: FDA-Public Use
  Company Number: NL-BAXTER-2010BH012856

PATIENT
  Age: 59 Year
  Sex: Male

DRUGS (1)
  1. TISSEEL VH KIT [Suspect]
     Indication: ABDOMINAL WALL OPERATION
     Route: 065
     Dates: start: 20100312, end: 20100312

REACTIONS (2)
  - ANASTOMOTIC LEAK [None]
  - ENTEROCUTANEOUS FISTULA [None]
